FAERS Safety Report 5380287-1 (Version None)
Quarter: 2007Q3

REPORT INFORMATION
  Report Type: 
  Country: None (occurrence: None)
  Receive Date: 20070706
  Receipt Date: 20070628
  Transmission Date: 20080115
  Serious: Yes (Other)
  Sender: FDA-Public Use
  Company Number: FR-AMGEN-UK228612

PATIENT
  Age: 61 Year
  Sex: Female
  Weight: 58 kg

DRUGS (9)
  1. ARANESP [Suspect]
     Indication: RENAL FAILURE CHRONIC
     Route: 065
     Dates: start: 20070115
  2. ZOCOR [Concomitant]
     Route: 048
  3. AMLODIPINE [Concomitant]
     Route: 048
  4. LASIX [Concomitant]
     Route: 048
  5. LEVOTHYROXINE SODIUM [Concomitant]
     Route: 048
  6. IRBESARTAN [Concomitant]
     Route: 048
  7. SINTROM [Concomitant]
     Route: 048
  8. ALLOPURINOL [Concomitant]
     Route: 048
  9. KAYEXALATE [Concomitant]
     Route: 048

REACTIONS (5)
  - BURNING SENSATION [None]
  - ERYTHEMA [None]
  - FLUSHING [None]
  - PAIN [None]
  - PETECHIAE [None]
